FAERS Safety Report 4620876-2 (Version None)
Quarter: 2005Q1

REPORT INFORMATION
  Report Type: 
  Country: None (occurrence: None)
  Receive Date: 20050325
  Receipt Date: 20050315
  Transmission Date: 20050727
  Serious: Yes (Death)
  Sender: FDA-Public Use
  Company Number: TCI2005A01568

PATIENT
  Age: 72 Year
  Sex: Female

DRUGS (2)
  1. ACTOS [Suspect]
     Indication: DIABETES MELLITUS
     Dosage: 15 MG (15 MG 1 D)
     Route: 048
     Dates: start: 20050205, end: 20050307
  2. BLOPRESS           (CANDESARTAN CILEXETIL) [Concomitant]

REACTIONS (3)
  - DYSPNOEA [None]
  - INJURY ASPHYXIATION [None]
  - THROAT IRRITATION [None]
